FAERS Safety Report 23861938 (Version 1)
Quarter: 2024Q2

REPORT INFORMATION
  Report Type: Spontaneous
  Country: US (occurrence: None)
  Receive Date: 20240516
  Receipt Date: 20240516
  Transmission Date: 20240716
  Serious: No
  Sender: FDA-Public Use
  Company Number: 2024A107677

PATIENT
  Sex: Male

DRUGS (1)
  1. BREZTRI [Suspect]
     Active Substance: BUDESONIDE\FORMOTEROL\GLYCOPYRROLATE
     Route: 055

REACTIONS (8)
  - Feeling abnormal [Unknown]
  - Incorrect dose administered by device [Unknown]
  - Overdose [Unknown]
  - Device malfunction [Unknown]
  - Intentional device misuse [Unknown]
  - Product storage error [Unknown]
  - Wrong technique in device usage process [Unknown]
  - Device use issue [Unknown]
